FAERS Safety Report 9964033 (Version 1)
Quarter: 2014Q1

REPORT INFORMATION
  Report Type: Spontaneous
  Country: IT (occurrence: IT)
  Receive Date: 20140305
  Receipt Date: 20140305
  Transmission Date: 20141002
  Serious: Yes (Other)
  Sender: FDA-Public Use
  Company Number: PHHY2014IT024850

PATIENT
  Age: 24 Year
  Sex: Female

DRUGS (9)
  1. DICLOFENAC [Suspect]
  2. KETOROLAC [Suspect]
     Route: 042
  3. IBUPROFEN [Suspect]
  4. TRAMADOL [Suspect]
  5. PARACETAMOL [Suspect]
     Dosage: 1000 MG, PER DAY
     Route: 042
  6. DEXAMETHASONE [Suspect]
     Dosage: 8 MG, PER DAY
     Route: 030
  7. PREDNISONE [Suspect]
     Dosage: 50 MG, DAY
  8. SUMATRIPTAN [Suspect]
     Dosage: 6 MG, UNK
     Route: 058
  9. COCAINE [Suspect]

REACTIONS (18)
  - Drug abuse [Unknown]
  - Cluster headache [Recovering/Resolving]
  - Facial pain [Recovering/Resolving]
  - Headache [Recovering/Resolving]
  - Eye pain [Recovering/Resolving]
  - Rhinorrhoea [Recovering/Resolving]
  - Lacrimation increased [Recovering/Resolving]
  - Conjunctival hyperaemia [Recovering/Resolving]
  - Eyelid ptosis [Recovering/Resolving]
  - Pain [Recovering/Resolving]
  - Restlessness [Recovering/Resolving]
  - Nervousness [Recovering/Resolving]
  - Epistaxis [Recovering/Resolving]
  - Burning sensation [Recovering/Resolving]
  - Excessive granulation tissue [Recovering/Resolving]
  - Necrosis [Recovering/Resolving]
  - Drug ineffective [Unknown]
  - Therapeutic response decreased [Unknown]
